FAERS Safety Report 6501766-7 (Version None)
Quarter: 2009Q4

REPORT INFORMATION
  Report Type: 
  Country: None (occurrence: None)
  Receive Date: 20091216
  Receipt Date: 20091207
  Transmission Date: 20100525
  Serious: Yes (Hospitalization, Other)
  Sender: FDA-Public Use
  Company Number: US-PFIZER INC-2009307286

PATIENT
  Sex: Male
  Weight: 84.368 kg

DRUGS (3)
  1. CELEBREX [Suspect]
     Indication: JOINT STIFFNESS
     Dosage: 100 MG FREQUENCY UNKNOWN
  2. CELEBREX [Suspect]
     Dosage: 200 MG DAILY ON ALTERNATE DAYS
  3. WARFARIN SODIUM [Suspect]
     Dates: start: 20070101

REACTIONS (3)
  - FLUID RETENTION [None]
  - HAEMORRHAGE [None]
  - HEART VALVE REPLACEMENT [None]
